FAERS Safety Report 5044946-2 (Version None)
Quarter: 2006Q3

REPORT INFORMATION
  Report Type: 
  Country: None (occurrence: None)
  Receive Date: 20060705
  Receipt Date: 20060622
  Transmission Date: 20061208
  Serious: Yes (Other)
  Sender: FDA-Public Use
  Company Number: 200614278BWH

PATIENT
  Age: 74 Year
  Sex: Male

DRUGS (12)
  1. NEXAVAR [Suspect]
     Indication: RENAL CELL CARCINOMA STAGE UNSPECIFIED
     Dosage: SEE IMAGE
     Route: 048
     Dates: start: 20050901, end: 20051201
  2. NEXAVAR [Suspect]
     Indication: RENAL CELL CARCINOMA STAGE UNSPECIFIED
     Dosage: SEE IMAGE
     Route: 048
     Dates: start: 20051201
  3. FENTANYL TRANSDERMAL SYSTEM [Concomitant]
  4. HYDROCODONE [Concomitant]
  5. SPIRIVA [Concomitant]
  6. ADVAIR DISKUS 100/50 [Concomitant]
  7. ALBUTEROL SPIROS [Concomitant]
  8. NEXIUM [Concomitant]
  9. LASIX [Concomitant]
  10. ZOMETA [Concomitant]
  11. COMPAZINE [Concomitant]
  12. ZOLOFT [Concomitant]

REACTIONS (2)
  - PALMAR-PLANTAR ERYTHRODYSAESTHESIA SYNDROME [None]
  - SQUAMOUS CELL CARCINOMA [None]
